FAERS Safety Report 4865291-1 (Version None)
Quarter: 2005Q4

REPORT INFORMATION
  Report Type: 
  Country: None (occurrence: None)
  Receive Date: 20051223
  Receipt Date: 20051214
  Transmission Date: 20060501
  Serious: Yes (Other)
  Sender: FDA-Public Use
  Company Number: NL-SANOFI-SYNTHELABO-A01200508718

PATIENT
  Sex: Male

DRUGS (1)
  1. STILNOCT [Suspect]
     Indication: DRUG USE FOR UNKNOWN INDICATION
     Dosage: 10 MG
     Route: 048
     Dates: start: 20021101, end: 20021101

REACTIONS (2)
  - PSYCHOTIC DISORDER [None]
  - SLEEP WALKING [None]
